FAERS Safety Report 10759492 (Version 2)
Quarter: 2015Q1

REPORT INFORMATION
  Report Type: Spontaneous
  Country: US (occurrence: US)
  Receive Date: 20150203
  Receipt Date: 20150302
  Transmission Date: 20150721
  Serious: No
  Sender: FDA-Public Use
  Company Number: US-GLAXOSMITHKLINE-US2014GSK049153

PATIENT
  Sex: Male

DRUGS (2)
  1. VOTRIENT [Suspect]
     Active Substance: PAZOPANIB HYDROCHLORIDE
     Indication: RENAL CANCER
     Dosage: 600 MG, BID
     Route: 065
     Dates: start: 20141107
  2. VOTRIENT [Suspect]
     Active Substance: PAZOPANIB HYDROCHLORIDE
     Dosage: 2 TABLETS IN THE MORNING AND ONE TABLET AT 1PM IN AFTERNOON
     Route: 048
     Dates: start: 20131018

REACTIONS (2)
  - Skin discolouration [Unknown]
  - Disease progression [Unknown]
